FAERS Safety Report 14999910 (Version 1)
Quarter: 2018Q2

REPORT INFORMATION
  Report Type: Spontaneous
  Country: FR (occurrence: FR)
  Receive Date: 20180612
  Receipt Date: 20180612
  Transmission Date: 20180711
  Serious: Yes (Hospitalization)
  Sender: FDA-Public Use
  Company Number: FR-ACCORD-068337

PATIENT
  Age: 50 Year
  Sex: Female
  Weight: 49.2 kg

DRUGS (1)
  1. CISPLATIN ACCORD [Suspect]
     Active Substance: CISPLATIN
     Indication: CERVIX CARCINOMA STAGE 0
     Route: 042

REACTIONS (6)
  - Rash [Recovered/Resolved]
  - Pruritus [Recovered/Resolved]
  - Type I hypersensitivity [Recovered/Resolved]
  - Abdominal pain upper [Recovered/Resolved]
  - Hypotension [Recovered/Resolved]
  - Hot flush [Recovered/Resolved]

NARRATIVE: CASE EVENT DATE: 20171025
